FAERS Safety Report 20303654 (Version 1)
Quarter: 2022Q1

REPORT INFORMATION
  Report Type: Spontaneous
  Country: US (occurrence: None)
  Receive Date: 20220105
  Receipt Date: 20220105
  Transmission Date: 20220423
  Serious: No
  Sender: FDA-Public Use
  Company Number: None

PATIENT
  Age: 69 Year
  Sex: Male

DRUGS (1)
  1. DICLOFENAC [Suspect]
     Active Substance: DICLOFENAC
     Indication: Pain
     Dosage: FREQUENCY : AS NEEDED;?
     Route: 048
     Dates: start: 20210927, end: 20211223

REACTIONS (6)
  - Abdominal pain [None]
  - Nausea [None]
  - Vomiting [None]
  - Refusal of treatment by patient [None]
  - Gastritis erosive [None]
  - Duodenal ulcer [None]

NARRATIVE: CASE EVENT DATE: 20211223
